FAERS Safety Report 17853262 (Version 1)
Quarter: 2020Q2

REPORT INFORMATION
  Report Type: Spontaneous
  Country: US (occurrence: US)
  Receive Date: 20200603
  Receipt Date: 20200603
  Transmission Date: 20200714
  Serious: No
  Sender: FDA-Public Use
  Company Number: US-STRIDES ARCOLAB LIMITED-2020SP001839

PATIENT
  Age: 12 Year
  Sex: Male

DRUGS (1)
  1. TRIAMCINOLONE ACETONIDE. [Suspect]
     Active Substance: TRIAMCINOLONE ACETONIDE
     Indication: KELOID SCAR
     Dosage: 0.5 MILLILITER, SINGLE INTRALESIONAL INJECTION 0.5ML (40 MG/ML)
     Route: 026

REACTIONS (1)
  - Skin hypopigmentation [Recovered/Resolved]
